FAERS Safety Report 8062882-4 (Version None)
Quarter: 2012Q1

REPORT INFORMATION
  Report Type: 
  Country: None (occurrence: None)
  Receive Date: 20120123
  Receipt Date: 20120117
  Transmission Date: 20120608
  Serious: Yes (Other)
  Sender: FDA-Public Use
  Company Number: US-SANOFI-AVENTIS-2011SA082573

PATIENT
  Age: 75 Year
  Sex: Female

DRUGS (2)
  1. ZOLPIDEM TARTRATE [Suspect]
     Indication: SLEEP DISORDER
     Route: 048
  2. AMBIEN [Suspect]
     Indication: SLEEP DISORDER
     Route: 048

REACTIONS (2)
  - UPPER LIMB FRACTURE [None]
  - DRUG INEFFECTIVE [None]
